FAERS Safety Report 5898691-1 (Version None)
Quarter: 2008Q3

REPORT INFORMATION
  Report Type: 
  Country: None (occurrence: None)
  Receive Date: 20080925
  Receipt Date: 20080415
  Transmission Date: 20090109
  Serious: No
  Sender: FDA-Public Use
  Company Number: A0722866A

PATIENT
  Age: 46 Year
  Sex: Female

DRUGS (3)
  1. WELLBUTRIN XL [Suspect]
     Indication: DEPRESSION
     Dosage: 150MG PER DAY
     Route: 048
     Dates: start: 20080408, end: 20080414
  2. DETROL [Concomitant]
  3. PROTONIX [Concomitant]

REACTIONS (1)
  - DIARRHOEA [None]
